FAERS Safety Report 5341788-5 (Version None)
Quarter: 2007Q2

REPORT INFORMATION
  Report Type: 
  Country: None (occurrence: None)
  Receive Date: 20070601
  Receipt Date: 20070528
  Transmission Date: 20071010
  Serious: Yes (Life-Threatening, Other)
  Sender: FDA-Public Use
  Company Number: FR-ELI_LILLY_AND_COMPANY-FR200705006733

PATIENT
  Age: 63 Year
  Sex: Female

DRUGS (6)
  1. GEMZAR [Suspect]
     Indication: BREAST CANCER METASTATIC
     Dosage: 2000 MG, OTHER
     Route: 042
     Dates: start: 20060110, end: 20061221
  2. SERESTA [Concomitant]
     Route: 048
  3. SOLU-MEDROL [Concomitant]
     Indication: PROPHYLAXIS
     Dosage: UNK, UNK
     Route: 042
     Dates: start: 20051220, end: 20061220
  4. OSMOTAN [Concomitant]
     Indication: PROPHYLAXIS
     Dosage: UNK, UNK
     Route: 042
     Dates: start: 20051220, end: 20061220
  5. ZOFRAN [Concomitant]
     Indication: PROPHYLAXIS
     Dosage: UNK, UNK
     Route: 042
     Dates: start: 20051220, end: 20061220
  6. DAFLON [Concomitant]
     Dosage: 1000 MG, DAILY (1/D)
     Route: 048

REACTIONS (4)
  - ANGIODERMATITIS [None]
  - ESCHERICHIA SEPSIS [None]
  - HAEMOLYTIC URAEMIC SYNDROME [None]
  - LIVEDO RETICULARIS [None]
